FAERS Safety Report 12987113 (Version 1)
Quarter: 2016Q4

REPORT INFORMATION
  Report Type: Spontaneous
  Country: US (occurrence: US)
  Receive Date: 20161129
  Receipt Date: 20161129
  Transmission Date: 20170207
  Serious: No
  Sender: FDA-Public Use
  Company Number: None

PATIENT
  Age: 51 Year
  Sex: Female

DRUGS (1)
  1. ENBREL [Suspect]
     Active Substance: ETANERCEPT

REACTIONS (6)
  - Injection site erythema [None]
  - Swelling [None]
  - Injection site pain [None]
  - Injection site swelling [None]
  - Injection site warmth [None]
  - Injection site pruritus [None]

NARRATIVE: CASE EVENT DATE: 20161129
